FAERS Safety Report 20558986 (Version 1)
Quarter: 2022Q1

REPORT INFORMATION
  Report Type: Spontaneous
  Country: US (occurrence: None)
  Receive Date: 20220304
  Receipt Date: 20220304
  Transmission Date: 20220424
  Serious: No
  Sender: FDA-Public Use
  Company Number: None

PATIENT
  Sex: Male

DRUGS (1)
  1. TREMFYA [Suspect]
     Active Substance: GUSELKUMAB
     Indication: Psoriatic arthropathy
     Dosage: INJECT 1 PEN UNDER THE SKIN (SUBCUTANEOUS  INJECTION) ONCE EVERY 8 WEEKS?
     Route: 058
     Dates: start: 20200519

REACTIONS (1)
  - Burkitt^s lymphoma [None]
